FAERS Safety Report 17710433 (Version 1)
Quarter: 2020Q2

REPORT INFORMATION
  Report Type: Spontaneous
  Country: US (occurrence: US)
  Receive Date: 20200427
  Receipt Date: 20200427
  Transmission Date: 20200714
  Serious: No
  Sender: FDA-Public Use
  Company Number: US-MYLANLABS-2020M1040525

PATIENT
  Age: 35 Year
  Sex: Female
  Weight: 44 kg

DRUGS (1)
  1. CITALOPRAM [Suspect]
     Active Substance: CITALOPRAM HYDROBROMIDE
     Indication: DEPRESSION
     Dosage: 20 MILLIGRAM, QD (DAILY)
     Route: 048
     Dates: end: 20200310

REACTIONS (7)
  - Eye swelling [Recovered/Resolved]
  - Ocular hyperaemia [Recovered/Resolved]
  - Weight decreased [Not Recovered/Not Resolved]
  - Panic attack [Recovering/Resolving]
  - Eye pain [Recovered/Resolved]
  - Vision blurred [Recovered/Resolved]
  - Malaise [Recovering/Resolving]

NARRATIVE: CASE EVENT DATE: 202001
